FAERS Safety Report 11430585 (Version 2)
Quarter: 2017Q1

REPORT INFORMATION
  Report Type: Spontaneous
  Country: US (occurrence: US)
  Receive Date: 20150828
  Receipt Date: 20170104
  Transmission Date: 20170428
  Serious: No
  Sender: FDA-Public Use
  Company Number: PHEH2015US007894

PATIENT
  Sex: Female

DRUGS (2)
  1. PROMETRIUM [Concomitant]
     Active Substance: PROGESTERONE
     Indication: PRODUCT USED FOR UNKNOWN INDICATION
     Route: 065
  2. VIVELLE-DOT [Suspect]
     Active Substance: ESTRADIOL
     Indication: PRODUCT USED FOR UNKNOWN INDICATION
     Dosage: 0.025 OT, UNK
     Route: 065

REACTIONS (4)
  - Hyperhidrosis [Unknown]
  - Feeling hot [Unknown]
  - Malaise [Unknown]
  - Drug ineffective [Unknown]
